FAERS Safety Report 13019771 (Version 1)
Quarter: 2016Q4

REPORT INFORMATION
  Report Type: Spontaneous
  Country: US (occurrence: US)
  Receive Date: 20161212
  Receipt Date: 20161212
  Transmission Date: 20170207
  Serious: No
  Sender: FDA-Public Use
  Company Number: US-ROCHE-1725971

PATIENT
  Age: 52 Year
  Sex: Female

DRUGS (2)
  1. VALIUM [Suspect]
     Active Substance: DIAZEPAM
     Indication: VERTIGO
     Route: 065
     Dates: start: 201502
  2. XANAX [Concomitant]
     Active Substance: ALPRAZOLAM
     Indication: VERTIGO
     Dosage: 15 X R TOO STRONG DUE TO HYPERSENSITIVITY, NEED 25 XR . IT WAS NOT WORKING HENCE TRIED TO USE ANOTHE
     Route: 065

REACTIONS (2)
  - Impaired driving ability [Not Recovered/Not Resolved]
  - Drug ineffective [Unknown]

NARRATIVE: CASE EVENT DATE: 201502
